FAERS Safety Report 20090179 (Version 1)
Quarter: 2021Q4

REPORT INFORMATION
  Report Type: Spontaneous
  Country: FR (occurrence: FR)
  Receive Date: 20211119
  Receipt Date: 20211119
  Transmission Date: 20220303
  Serious: Yes (Death, Other)
  Sender: FDA-Public Use
  Company Number: FR-NOVARTISPH-NVSC2021FR264123

PATIENT
  Sex: Female

DRUGS (4)
  1. AMOXICILLIN [Suspect]
     Active Substance: AMOXICILLIN
     Indication: Ear infection
     Dosage: UNK UNK, Q12H (UNK, BID) (CLAMOXYL)
     Route: 065
  2. OFLOXACIN [Suspect]
     Active Substance: OFLOXACIN
     Indication: Ear infection
     Dosage: UNK UNK, Q12H (UNK UNK, BID)
     Route: 065
  3. PARAXIN [Concomitant]
     Indication: Product used for unknown indication
     Dosage: UNK (PARAXIN, ANTI-SECRETORY)
     Route: 065
  4. HYMOXYL [Concomitant]
     Indication: Product used for unknown indication
     Dosage: UNK (1:4)
     Route: 065

REACTIONS (5)
  - Death [Fatal]
  - Pseudomembranous colitis [Unknown]
  - Drug ineffective [Unknown]
  - Vomiting [Unknown]
  - Diarrhoea [Unknown]

NARRATIVE: CASE EVENT DATE: 20211001
